FAERS Safety Report 6980279-2 (Version None)
Quarter: 2010Q3

REPORT INFORMATION
  Report Type: 
  Country: None (occurrence: None)
  Receive Date: 20100914
  Receipt Date: 20100906
  Transmission Date: 20110219
  Serious: Yes (Other)
  Sender: FDA-Public Use
  Company Number: HU-ROCHE-725336

PATIENT

DRUGS (3)
  1. PEGINTERFERON ALFA-2A [Suspect]
     Dosage: DOSE:180 UG/WEEK.
     Route: 058
  2. PEGINTERFERON ALFA-2B [Suspect]
     Dosage: DOSE:1.5 UG/BODY WEIGHT KG/WEEK.NO
     Route: 058
  3. RIBAVIRIN [Suspect]
     Dosage: DOSE:10.6 MG/BODY WEIGHT KG/DIE
     Route: 065

REACTIONS (4)
  - ANGINA PECTORIS [None]
  - ATRIAL FIBRILLATION [None]
  - DEPRESSION [None]
  - PULMONARY FIBROSIS [None]
